FAERS Safety Report 7263321-3 (Version None)
Quarter: 2011Q1

REPORT INFORMATION
  Report Type: 
  Country: None (occurrence: None)
  Receive Date: 20110130
  Receipt Date: 20101005
  Transmission Date: 20110831
  Serious: No
  Sender: FDA-Public Use
  Company Number: US-ABBOTT-10P-163-0675873-00

PATIENT
  Age: 37 Year
  Sex: Female

DRUGS (7)
  1. HUMIRA [Suspect]
     Indication: CROHN'S DISEASE
     Dates: start: 20100901
  2. ZOFRAN [Concomitant]
     Indication: CROHN'S DISEASE
  3. CREON [Concomitant]
     Indication: PANCREATITIS
     Dosage: PILL
  4. PREVACID [Concomitant]
     Indication: DYSPEPSIA
  5. PREDNISONE [Concomitant]
     Indication: CROHN'S DISEASE
     Dosage: ON DECREASING DOSE
  6. LOMOTIL [Concomitant]
     Indication: CROHN'S DISEASE
  7. LIALDA [Concomitant]
     Indication: CROHN'S DISEASE

REACTIONS (2)
  - OROPHARYNGEAL PAIN [None]
  - FATIGUE [None]
